FAERS Safety Report 5501457-5 (Version None)
Quarter: 2007Q4

REPORT INFORMATION
  Report Type: 
  Country: None (occurrence: None)
  Receive Date: 20071018
  Receipt Date: 20070308
  Transmission Date: 20080405
  Serious: Yes (Death)
  Sender: FDA-Public Use
  Company Number: 2007019989

PATIENT
  Age: 48 Year
  Sex: Female

DRUGS (1)
  1. NEURONTIN [Suspect]
     Indication: DIABETIC NEUROPATHY
     Dosage: 1200 MG
     Dates: start: 20030601, end: 20031101

REACTIONS (1)
  - COMPLETED SUICIDE [None]
